FAERS Safety Report 8791908 (Version 1)
Quarter: 2012Q4

REPORT INFORMATION
  Report Type: 
  Country: BR (occurrence: BR)
  Receive Date: 20120918
  Receipt Date: 20120918
  Transmission Date: 20130627
  Serious: Yes (Other)
  Sender: FDA-Public Use
  Company Number: BR-PFIZER INC-2012025956

PATIENT
  Age: 70 Year
  Sex: Male
  Weight: 90 kg

DRUGS (9)
  1. SUTENT [Suspect]
     Indication: METASTATIC RENAL CELL CARCINOMA
     Dosage: 50 mg, 1x/day
     Route: 048
     Dates: start: 201005
  2. SUTENT [Suspect]
     Dosage: 37.5 mg (cycle 4 to 2), unspecified frequency
     Route: 048
     Dates: start: 20100501
  3. ATENOLOL [Concomitant]
     Dosage: 50 mg, 2x/day (2 tablets daily)
  4. DESALEX [Concomitant]
     Dosage: 5 mg, (1 tablet daily)
  5. ATACAND [Concomitant]
     Dosage: 16/12.5 mg (1 tablet daily)
  6. MARCOUMAR [Concomitant]
     Dosage: 1.5 mg, daily (a half of tablet of 3mg daily)
  7. PURAN T4 [Concomitant]
  8. DESLORATADINE [Concomitant]
     Dosage: 5 mg, 1x/day (1 tablet daily)
  9. ATACAND HCT [Concomitant]
     Dosage: [candesartan cilexetil 16 mg]/[hydrochlorothiazide 12.5 mg] (one tablet daily)

REACTIONS (5)
  - Asphyxia [Unknown]
  - Fatigue [Recovering/Resolving]
  - Limb injury [Unknown]
  - Blood glucose abnormal [Unknown]
  - Chest discomfort [Unknown]
